FAERS Safety Report 9688216 (Version 1)
Quarter: 2013Q4

REPORT INFORMATION
  Report Type: Spontaneous
  Country: IN (occurrence: None)
  Receive Date: 20131112
  Receipt Date: 20131112
  Transmission Date: 20140711
  Serious: Yes (Other)
  Sender: FDA-Public Use
  Company Number: 2013HINLIT0226

PATIENT
  Age: 35 Year
  Sex: Male

DRUGS (4)
  1. LITHIUM (LITHIUM) UNKNOWN [Suspect]
     Dosage: DAY, UNKNOWN
  2. SERTRALINE (SERTRALINE) [Suspect]
     Dosage: DAY, UNKNOWN
  3. CLOMIPRAMINE (CLOMIPRAMINE) [Suspect]
     Dosage: DAY, UNKNOWN
  4. RISPERIDONE (RISPERIDONE) [Suspect]
     Dosage: DAY. UNKNOWN

REACTIONS (7)
  - Serotonin syndrome [None]
  - Off label use [None]
  - Hallucination, auditory [None]
  - Gait disturbance [None]
  - Muscle twitching [None]
  - Ataxia [None]
  - Toxicity to various agents [None]
